FAERS Safety Report 4538595-X (Version None)
Quarter: 2004Q4

REPORT INFORMATION
  Report Type: 
  Country: None (occurrence: None)
  Receive Date: 20041222
  Receipt Date: 20041213
  Transmission Date: 20050328
  Serious: Yes (Other)
  Sender: FDA-Public Use
  Company Number: HQWYE944913DEC04

PATIENT
  Age: 59 Year
  Sex: Female

DRUGS (1)
  1. APTON (PANTOPRAZOLE, TABLET, DELAYED RELEASE) [Suspect]
     Indication: PROPHYLAXIS
     Dosage: 40 MG 1X PER 1 DAY ORAL
     Route: 048
     Dates: start: 20040920, end: 20040926

REACTIONS (2)
  - ABDOMINAL DISTENSION [None]
  - DIARRHOEA [None]
